FAERS Safety Report 8307744-X (Version None)
Quarter: 2012Q2

REPORT INFORMATION
  Report Type: 
  Country: None (occurrence: None)
  Receive Date: 20120424
  Receipt Date: 20120417
  Transmission Date: 20120825
  Serious: No
  Sender: FDA-Public Use
  Company Number: US-BAYER-2012-038859

PATIENT
  Age: 54 Year
  Sex: Female
  Weight: 118 kg

DRUGS (17)
  1. ALEVE-D SINUS + COLD [Suspect]
     Indication: SINUS HEADACHE
     Dosage: 1 TABLET EVERY 12 HOURS - 10 COUNT
     Route: 048
     Dates: start: 20120402, end: 20120411
  2. TRUVADA [Concomitant]
  3. WELLBUTRIN [Concomitant]
  4. ADVAIR DISKUS 100/50 [Concomitant]
  5. CIPROFLOXACIN HCL [Concomitant]
  6. ALBUTEROL [Concomitant]
  7. LEXAPRO [Concomitant]
  8. LOXAPINE [Concomitant]
  9. GLIMEPIRIDE [Concomitant]
  10. ZANTAC [Concomitant]
  11. RITALIN [Concomitant]
  12. LYRICA [Concomitant]
  13. NORVIR [Concomitant]
  14. ALEVE (CAPLET) [Suspect]
     Indication: ANALGESIC THERAPY
     Dosage: 1 TABLET TWICE DAILY
     Route: 048
     Dates: start: 20110101
  15. LEXIVA [Concomitant]
  16. ACTOS [Concomitant]
  17. METFORMIN HCL [Concomitant]

REACTIONS (2)
  - SINUS HEADACHE [None]
  - SOMNOLENCE [None]
